FAERS Safety Report 8691561 (Version 4)
Quarter: 2013Q1

REPORT INFORMATION
  Report Type: Spontaneous
  Country: US (occurrence: None)
  Receive Date: 20120705
  Receipt Date: 20130304
  Transmission Date: 20140127
  Serious: Yes (Hospitalization)
  Sender: FDA-Public Use
  Company Number: 003-079

PATIENT
  Age: 30 Year
  Sex: Female

DRUGS (1)
  1. CROFAB [Suspect]
     Indication: SNAKE BITE
     Dosage: 14 VIALS TOTAL
     Dates: start: 20120619

REACTIONS (4)
  - Oedema peripheral [None]
  - Contusion [None]
  - Sensory loss [None]
  - Blood pressure systolic increased [None]
